FAERS Safety Report 17725566 (Version 8)
Quarter: 2021Q3

REPORT INFORMATION
  Report Type: Report from Study
  Country: DE (occurrence: DE)
  Receive Date: 20200429
  Receipt Date: 20210928
  Transmission Date: 20211014
  Serious: Yes (Other)
  Sender: FDA-Public Use
  Company Number: DE-MYLANLABS-2020M1042273

PATIENT
  Sex: Female
  Weight: 93 kg

DRUGS (7)
  1. ANASTROZOLE. [Suspect]
     Active Substance: ANASTROZOLE
     Indication: BREAST CANCER METASTATIC
     Dosage: 2.5 MILLIGRAM, QD (2.5 MG, QD)
     Route: 048
     Dates: start: 20190925, end: 20191106
  2. ANASTROZOLE. [Suspect]
     Active Substance: ANASTROZOLE
     Dosage: 1 MILLIGRAM, QD (1 MG, QD)
     Route: 048
     Dates: start: 20191201, end: 20200421
  3. ANASTROZOLE. [Suspect]
     Active Substance: ANASTROZOLE
     Dosage: 1 MILLIGRAM, QD (1 MG, QD)
     Route: 048
     Dates: start: 20191113, end: 20191130
  4. ANASTROZOLE. [Suspect]
     Active Substance: ANASTROZOLE
     Dosage: 1 MILLIGRAM, QD (1 MG, QD)
     Route: 048
     Dates: start: 20191220, end: 20200106
  5. KISQALI [Suspect]
     Active Substance: RIBOCICLIB
     Dosage: 400 MG, QD, 21 DAYS INTAKE, 7 DAYS PAUSE
     Route: 048
     Dates: start: 20200107, end: 20200224
  6. KISQALI [Suspect]
     Active Substance: RIBOCICLIB
     Dosage: 200 MG QD, 21 DAYS INTAKE, 7 DAYS PAUSE
     Route: 048
     Dates: start: 20200225, end: 20200421
  7. KISQALI [Suspect]
     Active Substance: RIBOCICLIB
     Indication: BREAST CANCER METASTATIC
     Dosage: 600 MG, QD,21 DAYS INTAKE, 7 DAYS PAUSE
     Route: 048
     Dates: start: 20191201, end: 20191219

REACTIONS (4)
  - Platelet count decreased [Recovered/Resolved]
  - Bone pain [Not Recovered/Not Resolved]
  - Blood creatinine increased [Not Recovered/Not Resolved]
  - Transaminases increased [Recovered/Resolved]

NARRATIVE: CASE EVENT DATE: 20200106
